FAERS Safety Report 15359231 (Version 3)
Quarter: 2018Q3

REPORT INFORMATION
  Report Type: Report from Study
  Country: CO (occurrence: CO)
  Receive Date: 20180907
  Receipt Date: 20180928
  Transmission Date: 20181010
  Serious: Yes (Other)
  Sender: FDA-Public Use
  Company Number: PHHY2018CO065988

PATIENT
  Sex: Male
  Weight: 70 kg

DRUGS (1)
  1. VOTRIENT [Suspect]
     Active Substance: PAZOPANIB HYDROCHLORIDE
     Indication: SOFT TISSUE SARCOMA
     Dosage: 2 DF, QD
     Route: 048
     Dates: start: 20180622, end: 201808

REACTIONS (17)
  - Neoplasm progression [Unknown]
  - Vomiting [Unknown]
  - Diarrhoea [Unknown]
  - Abdominal pain upper [Unknown]
  - Dry mouth [Unknown]
  - Oral discomfort [Unknown]
  - Tumour pain [Unknown]
  - Bone cancer [Recovered/Resolved]
  - Alcohol poisoning [Unknown]
  - Feeding disorder [Unknown]
  - Headache [Unknown]
  - Dizziness [Unknown]
  - Malignant neoplasm of spinal cord [Recovered/Resolved]
  - Stomatitis [Unknown]
  - Throat irritation [Unknown]
  - Second primary malignancy [Unknown]
  - Pigmentation disorder [Unknown]
